FAERS Safety Report 21517349 (Version 3)
Quarter: 2022Q4

REPORT INFORMATION
  Report Type: Other
  Country: DE (occurrence: None)
  Receive Date: 20221028
  Receipt Date: 20221120
  Transmission Date: 20230113
  Serious: No
  Sender: FDA-Public Use
  Company Number: DE-ROCHE-3208542

PATIENT
  Age: 40 Year
  Sex: Female

DRUGS (10)
  1. OCRELIZUMAB [Suspect]
     Active Substance: OCRELIZUMAB
     Indication: Relapsing multiple sclerosis
     Route: 042
     Dates: start: 20220225
  2. PROPIONIC ACID [Concomitant]
     Active Substance: PROPIONIC ACID
     Route: 048
     Dates: start: 2021
  3. VIGANTOL [Concomitant]
     Route: 048
     Dates: start: 2011
  4. TAMSULOSIN [Concomitant]
     Active Substance: TAMSULOSIN
     Route: 048
     Dates: start: 2006
  5. OFLOXACIN [Concomitant]
     Active Substance: OFLOXACIN
     Indication: Urinary tract infection bacterial
     Route: 048
     Dates: start: 20210221, end: 20210223
  6. MAGNESIUM [Concomitant]
     Active Substance: MAGNESIUM
     Route: 048
     Dates: start: 2021
  7. ACETAMINOPHEN [Concomitant]
     Active Substance: ACETAMINOPHEN
     Dosage: 11/MAR/2022, 21/OCT/2022
     Route: 048
     Dates: start: 20220225, end: 20220225
  8. CLEMASTINE FUMARATE [Concomitant]
     Active Substance: CLEMASTINE FUMARATE
     Dosage: 11/MAR/2022, 21/OCT/2022
     Route: 042
     Dates: start: 20220225, end: 20220225
  9. METHYLPREDNISOLONE [Concomitant]
     Active Substance: METHYLPREDNISOLONE
     Dosage: 11/MAR/2022, 21/OCT/2021
     Route: 042
     Dates: start: 20220225, end: 20220225
  10. AMANTADINE [Concomitant]
     Active Substance: AMANTADINE
     Route: 048
     Dates: start: 20220815

REACTIONS (1)
  - COVID-19 [Recovered/Resolved]

NARRATIVE: CASE EVENT DATE: 20221001
